FAERS Safety Report 4735255-7 (Version None)
Quarter: 2005Q3

REPORT INFORMATION
  Report Type: 
  Country: None (occurrence: None)
  Receive Date: 20050802
  Receipt Date: 20050722
  Transmission Date: 20060218
  Serious: Yes (Other)
  Sender: FDA-Public Use
  Company Number: 216268

PATIENT
  Age: 9 Year
  Sex: Female

DRUGS (2)
  1. NUTROPIN AQ [Suspect]
     Indication: GROWTH HORMONE DEFICIENCY
     Dosage: 0.9 MG, 6/WEEK, SUBCUTANEOUS
     Route: 058
     Dates: start: 20050330
  2. SINGULAR (MONTELUKAST SODIUM) [Concomitant]

REACTIONS (9)
  - DRUG HYPERSENSITIVITY [None]
  - FLUID RETENTION [None]
  - FOOD ALLERGY [None]
  - INJECTION SITE HAEMORRHAGE [None]
  - INJECTION SITE IRRITATION [None]
  - INJECTION SITE JOINT PAIN [None]
  - INJECTION SITE JOINT SWELLING [None]
  - INJECTION SITE REACTION [None]
  - PHARMACEUTICAL PRODUCT COMPLAINT [None]
